FAERS Safety Report 7374235-2 (Version None)
Quarter: 2011Q1

REPORT INFORMATION
  Report Type: 
  Country: None (occurrence: None)
  Receive Date: 20110317
  Receipt Date: 20110304
  Transmission Date: 20110831
  Serious: Yes (Life-Threatening, Hospitalization)
  Sender: FDA-Public Use
  Company Number: TPA2011A00666

PATIENT
  Age: 81 Year
  Sex: Female

DRUGS (7)
  1. RAMIPRIL [Concomitant]
  2. RYTHMOL [Concomitant]
  3. LASIX [Concomitant]
  4. PREVISCAN (FLUIDIONE) [Concomitant]
  5. ADENURIC (FEBUXOSTAT) [Suspect]
     Indication: HYPERURICAEMIA
     Dosage: 80 MG (80 MG, 1 - 2) ORAL
     Route: 048
     Dates: start: 20101216
  6. COLCHIMAX (COLCHICINE, TIEMONIUM METHYLSULPHATE, PAPAVER SOMNIFERUM  P [Suspect]
  7. TENORMIN [Concomitant]

REACTIONS (5)
  - RENAL FAILURE ACUTE [None]
  - CARDIAC FAILURE [None]
  - DEHYDRATION [None]
  - DIARRHOEA [None]
  - HYPERKALAEMIA [None]
